FAERS Safety Report 10340427 (Version 4)
Quarter: 2017Q1

REPORT INFORMATION
  Report Type: Report from Study
  Country: JP (occurrence: JP)
  Receive Date: 20140724
  Receipt Date: 20170201
  Transmission Date: 20170428
  Serious: Yes (Death, Hospitalization, Other)
  Sender: FDA-Public Use
  Company Number: JP-GILEAD-2014-0109580

PATIENT
  Age: 44 Year
  Sex: Female
  Weight: 129 kg

DRUGS (33)
  1. TAKEPRON [Concomitant]
     Active Substance: LANSOPRAZOLE
     Indication: PROPHYLAXIS AGAINST GASTROINTESTINAL ULCER
     Dosage: UNK
     Route: 048
     Dates: start: 20120905
  2. AMLODIN [Concomitant]
     Active Substance: AMLODIPINE BESYLATE
     Indication: PULMONARY ARTERIAL HYPERTENSION
     Dosage: UNK
     Route: 048
     Dates: start: 20130626
  3. ORENCIA [Concomitant]
     Active Substance: ABATACEPT
     Dosage: UNK
     Dates: start: 20140108
  4. FLUITRAN [Concomitant]
     Active Substance: TRICHLORMETHIAZIDE
     Dosage: UNK
     Dates: start: 20130227
  5. AMBRISENTAN [Suspect]
     Active Substance: AMBRISENTAN
     Indication: PULMONARY ARTERIAL HYPERTENSION
     Dosage: 5 MG, BID
     Route: 048
     Dates: start: 20121017, end: 20160530
  6. WARFARIN [Suspect]
     Active Substance: WARFARIN
     Indication: PULMONARY ARTERIAL HYPERTENSION
  7. WARFARIN [Suspect]
     Active Substance: WARFARIN
     Indication: PULMONARY ARTERIAL HYPERTENSION
     Dosage: UNK
     Route: 048
     Dates: start: 20120822, end: 20130123
  8. MUCOSTA [Concomitant]
     Active Substance: REBAMIPIDE
     Dosage: UNK
  9. EQUA [Concomitant]
     Active Substance: VILDAGLIPTIN
     Dosage: UNK
     Route: 048
     Dates: start: 20130529
  10. AZILVA [Concomitant]
     Active Substance: AZILSARTAN KAMEDOXOMIL
     Dosage: UNK
     Dates: start: 20140319
  11. MAINTATE [Concomitant]
     Active Substance: BISOPROLOL FUMARATE
     Dosage: UNK
     Dates: start: 20150618
  12. AMBRISENTAN [Suspect]
     Active Substance: AMBRISENTAN
     Indication: PULMONARY ARTERIAL HYPERTENSION
     Dosage: 2.5 MG, BID
     Route: 048
     Dates: start: 20120822, end: 20121017
  13. ADCIRCA [Concomitant]
     Active Substance: TADALAFIL
     Indication: PULMONARY ARTERIAL HYPERTENSION
     Dosage: UNK
     Route: 048
     Dates: start: 20130626
  14. ALDACTONE A [Concomitant]
     Active Substance: SPIRONOLACTONE
     Dosage: UNK
     Route: 048
     Dates: start: 20120919, end: 20121226
  15. RIMATIL [Concomitant]
     Active Substance: BUCILLAMINE
     Dosage: UNK
     Route: 048
  16. MUCOSTA [Concomitant]
     Active Substance: REBAMIPIDE
     Indication: CHRONIC GASTRITIS
     Dosage: UNK
  17. MUCOSTA [Concomitant]
     Active Substance: REBAMIPIDE
     Dosage: UNK
  18. TAKEPRON [Concomitant]
     Active Substance: LANSOPRAZOLE
     Indication: PROPHYLAXIS AGAINST GASTROINTESTINAL ULCER
  19. BERASUS [Concomitant]
     Active Substance: BERAPROST SODIUM
     Indication: PULMONARY ARTERIAL HYPERTENSION
     Dosage: UNK
     Dates: start: 20131218
  20. CODEINE PHOSPHATE                  /00012605/ [Concomitant]
     Active Substance: CODEINE PHOSPHATE
     Dosage: UNK
     Route: 048
     Dates: end: 20130724
  21. ADCIRCA [Concomitant]
     Active Substance: TADALAFIL
     Indication: PULMONARY ARTERIAL HYPERTENSION
  22. RIMATIL [Concomitant]
     Active Substance: BUCILLAMINE
     Dosage: UNK
     Route: 048
  23. AZULFIDINE EN-TABS [Concomitant]
     Active Substance: SULFASALAZINE
     Dosage: UNK
     Route: 048
  24. PROGRAF [Concomitant]
     Active Substance: TACROLIMUS\TACROLIMUS ANHYDROUS
     Dosage: UNK
     Route: 048
  25. PROGRAF [Concomitant]
     Active Substance: TACROLIMUS\TACROLIMUS ANHYDROUS
     Route: 048
  26. EXFORGE [Concomitant]
     Active Substance: AMLODIPINE BESYLATE\VALSARTAN
     Dosage: UNK
     Route: 048
     Dates: start: 20120905, end: 20130626
  27. RIMATIL [Concomitant]
     Active Substance: BUCILLAMINE
     Dosage: UNK
     Route: 048
  28. RIMATIL [Concomitant]
     Active Substance: BUCILLAMINE
     Dosage: UNK
     Route: 048
  29. PROGRAF [Concomitant]
     Active Substance: TACROLIMUS\TACROLIMUS ANHYDROUS
     Dosage: UNK
     Route: 048
     Dates: end: 20151007
  30. TALION                             /01587402/ [Concomitant]
     Active Substance: BEPOTASTINE
     Indication: PRURITUS
     Dosage: UNK
     Dates: start: 20140205
  31. PARAMIDIN [Concomitant]
     Active Substance: BUCOLOME
     Indication: PROPHYLAXIS
     Dosage: UNK
     Route: 048
     Dates: start: 20121017
  32. MUCOSTA [Concomitant]
     Active Substance: REBAMIPIDE
     Dosage: UNK
  33. DIOVAN [Concomitant]
     Active Substance: VALSARTAN
     Dosage: UNK
     Route: 048
     Dates: start: 20130626, end: 20140318

REACTIONS (9)
  - Brain natriuretic peptide increased [Recovered/Resolved]
  - Blood creatinine increased [Recovered/Resolved]
  - Death [Fatal]
  - Viral infection [Recovered/Resolved]
  - Anaemia [Recovered/Resolved]
  - Cutaneous symptom [Recovering/Resolving]
  - Anaemia [Recovered/Resolved]
  - Occult blood [Recovered/Resolved]
  - Off label use [Recovered/Resolved]

NARRATIVE: CASE EVENT DATE: 20120822
